FAERS Safety Report 9821908 (Version 1)
Quarter: 2014Q1

REPORT INFORMATION
  Report Type: Spontaneous
  Country: IN (occurrence: IN)
  Receive Date: 20140116
  Receipt Date: 20140116
  Transmission Date: 20141002
  Serious: Yes (Congenital Anomaly, Other)
  Sender: FDA-Public Use
  Company Number: IN-ABBVIE-14P-078-1190308-00

PATIENT
  Age: 2 Month
  Sex: Male

DRUGS (1)
  1. VALPROIC ACID [Suspect]
     Indication: MATERNAL EXPOSURE TIMING UNSPECIFIED
     Route: 064

REACTIONS (17)
  - Foetal anticonvulsant syndrome [Unknown]
  - Foetal exposure during pregnancy [Unknown]
  - Dysmorphism [Unknown]
  - High arched palate [Unknown]
  - Head circumference abnormal [Unknown]
  - Head deformity [Unknown]
  - Nose deformity [Unknown]
  - Ear malformation [Unknown]
  - Dysmorphism [Unknown]
  - Congenital musculoskeletal anomaly [Unknown]
  - Coloboma [Unknown]
  - Anisometropia [Unknown]
  - Astigmatism [Unknown]
  - Intelligence test abnormal [Unknown]
  - Hypotelorism of orbit [Unknown]
  - Microstomia [Unknown]
  - Congenital oral malformation [Unknown]
